FAERS Safety Report 5953412-9 (Version None)
Quarter: 2008Q4

REPORT INFORMATION
  Report Type: 
  Country: None (occurrence: None)
  Receive Date: 20081114
  Receipt Date: 20081110
  Transmission Date: 20090506
  Serious: Yes (Hospitalization, Other)
  Sender: FDA-Public Use
  Company Number: US-EISAI MEDICAL RESEARCH-E2020-03677-SPO-US

PATIENT
  Age: 77 Year
  Sex: Male

DRUGS (2)
  1. ARICEPT [Suspect]
     Indication: DEMENTIA
     Dosage: UNKNOWN
     Route: 048
     Dates: start: 20080501, end: 20081101
  2. METOPROLOL TARTRATE [Suspect]
     Indication: DRUG USE FOR UNKNOWN INDICATION
     Dosage: UNKNOWN
     Route: 048
     Dates: start: 20081101, end: 20081101

REACTIONS (2)
  - BRADYCARDIA [None]
  - SICK SINUS SYNDROME [None]
